FAERS Safety Report 21814688 (Version 1)
Quarter: 2023Q1

REPORT INFORMATION
  Report Type: Report from Study
  Country: US (occurrence: US)
  Receive Date: 20230104
  Receipt Date: 20230104
  Transmission Date: 20230418
  Serious: No
  Sender: FDA-Public Use
  Company Number: US-ABBVIE-4228468

PATIENT
  Sex: Female

DRUGS (1)
  1. HUMIRA [Suspect]
     Active Substance: ADALIMUMAB
     Indication: Rheumatoid arthritis
     Route: 058

REACTIONS (5)
  - Pain in extremity [Recovering/Resolving]
  - Grip strength decreased [Recovering/Resolving]
  - Peripheral swelling [Recovering/Resolving]
  - Unevaluable event [Unknown]
  - Neuralgia [Unknown]
